FAERS Safety Report 4945263-9 (Version None)
Quarter: 2006Q1

REPORT INFORMATION
  Report Type: 
  Country: None (occurrence: None)
  Receive Date: 20060316
  Receipt Date: 20060308
  Transmission Date: 20060701
  Serious: Yes (Hospitalization, Other)
  Sender: FDA-Public Use
  Company Number: US-BRISTOL-MYERS SQUIBB COMPANY-13308150

PATIENT
  Age: 49 Year
  Sex: Male
  Weight: 99 kg

DRUGS (9)
  1. ERBITUX [Suspect]
     Indication: NEOPLASM MALIGNANT
     Route: 042
  2. ANEMET [Concomitant]
     Indication: PREMEDICATION
     Route: 042
  3. BENADRYL [Concomitant]
     Indication: PREMEDICATION
     Route: 042
  4. OXYCONTIN [Concomitant]
  5. DILAUDID [Concomitant]
     Dosage: EVERY 4 HRS PRN
  6. COUMADIN [Concomitant]
  7. PREVACID [Concomitant]
  8. XANAX [Concomitant]
     Dosage: GIVEN AT HOUR OF SLEEP AND EVERY 6 HRS PRN
  9. DECADRON SRC [Concomitant]

REACTIONS (3)
  - HYPOXIA [None]
  - INTERSTITIAL LUNG DISEASE [None]
  - PULMONARY EMBOLISM [None]
